FAERS Safety Report 4555286-X (Version None)
Quarter: 2005Q1

REPORT INFORMATION
  Report Type: 
  Country: None (occurrence: None)
  Receive Date: 20041227
  Receipt Date: 20040708
  Transmission Date: 20050727
  Serious: No
  Sender: FDA-Public Use
  Company Number: US082775

PATIENT
  Age: 62 Year
  Sex: Female

DRUGS (5)
  1. ARANESP [Suspect]
     Indication: ANAEMIA
     Dosage: 1 IN 1 MONTHS
     Dates: start: 20040601
  2. AMOXICILLIN [Suspect]
     Dates: start: 20040707
  3. LEVOTHRYROXINE SODIUM [Concomitant]
  4. ESTROGENS [Concomitant]
  5. IRON [Concomitant]

REACTIONS (5)
  - EAR INFECTION [None]
  - ECCHYMOSIS [None]
  - HEADACHE [None]
  - HERPES SIMPLEX [None]
  - NAUSEA [None]
